FAERS Safety Report 7172901-5 (Version None)
Quarter: 2010Q4

REPORT INFORMATION
  Report Type: 
  Country: None (occurrence: None)
  Receive Date: 20101219
  Receipt Date: 20100216
  Transmission Date: 20110411
  Serious: Yes (Hospitalization)
  Sender: FDA-Public Use
  Company Number: US-AMGEN-KDL393161

PATIENT

DRUGS (17)
  1. ENBREL [Suspect]
     Indication: PRODUCT USED FOR UNKNOWN INDICATION
     Dosage: 50 MG, QWK
     Route: 058
  2. LOMOTIL [Concomitant]
     Dosage: 2.5 MG, UNK
     Route: 048
  3. METOPROLOL TARTRATE [Concomitant]
     Dosage: 50 MG, UNK
     Route: 048
  4. PANCREATIN [Concomitant]
     Dosage: UNK UNK, UNK
     Route: 048
  5. PREDNISONE [Concomitant]
     Dosage: 5 MG, UNK
     Route: 048
  6. WARFARIN SODIUM [Concomitant]
     Dosage: 2 MG, UNK
     Route: 048
  7. FOLIC ACID [Concomitant]
     Dosage: 1 MG, UNK
     Route: 048
  8. NITROFURANTOIN (MONOHYDRATE/MACROCRYSTALS) [Concomitant]
     Dosage: 100 MG, UNK
     Route: 048
  9. METHIMAZOLE [Concomitant]
     Dosage: 10 MG, UNK
     Route: 048
  10. CYANOCOBALAMIN [Concomitant]
     Dosage: 1000 A?G, UNK
  11. TIOTROPIUM BROMIDE [Concomitant]
     Dosage: UNK UNK, UNK
     Route: 055
  12. VESICARE [Concomitant]
     Dosage: 10 MG, UNK
     Route: 048
  13. POTASSIUM [Concomitant]
     Dosage: 25 MEQ, UNK
  14. ACETAMINOPHEN [Concomitant]
     Dosage: 325 MG, UNK
  15. CALCIUM CITRATE [Concomitant]
     Dosage: UNK UNK, UNK
     Route: 048
  16. METHOTREXATE [Concomitant]
     Dosage: 20 MG, UNK
  17. CALCITONIN [Concomitant]
     Dosage: 200 IU, UNK
     Route: 045

REACTIONS (3)
  - PNEUMONIA [None]
  - PYREXIA [None]
  - URINARY TRACT INFECTION [None]
